FAERS Safety Report 6400518-6 (Version None)
Quarter: 2009Q4

REPORT INFORMATION
  Report Type: 
  Country: None (occurrence: None)
  Receive Date: 20091013
  Receipt Date: 20091013
  Transmission Date: 20100525
  Serious: Yes (Hospitalization)
  Sender: FDA-Public Use
  Company Number: None

PATIENT
  Sex: Female
  Weight: 65.7716 kg

DRUGS (9)
  1. SORAFENIB 200 MG BAYER HEALTHCARE PHARMACEUTICALS, [Suspect]
     Indication: NEOPLASM
     Dosage: 400 MG BID PO
     Route: 048
     Dates: start: 20090924, end: 20091006
  2. LOSARTAN POSTASSIUM [Concomitant]
  3. FOLIC ACID [Concomitant]
  4. AMLODIPINE BESYLATE [Concomitant]
  5. TEMAZEPAM [Concomitant]
  6. HYDRALAZINE HCL [Concomitant]
  7. PROPANOLOL HCL [Concomitant]
  8. POTASSIUM CL [Concomitant]
  9. ESTRADIOL [Concomitant]

REACTIONS (3)
  - ABDOMINAL PAIN [None]
  - ASCITES [None]
  - TACHYCARDIA [None]
